FAERS Safety Report 7226515-9 (Version None)
Quarter: 2011Q1

REPORT INFORMATION
  Report Type: 
  Country: None (occurrence: None)
  Receive Date: 20110114
  Receipt Date: 20110104
  Transmission Date: 20110831
  Serious: Yes (Hospitalization)
  Sender: FDA-Public Use
  Company Number: DE-JNJFOC-20101201080

PATIENT
  Age: 59 Year
  Sex: Male
  Weight: 96 kg

DRUGS (7)
  1. FENISTIL [Concomitant]
  2. PANTOZOL [Concomitant]
  3. REMERGIL [Concomitant]
  4. REMICADE [Suspect]
     Indication: PSORIASIS
     Route: 042
  5. PRAVASTATIN SODIUM [Concomitant]
  6. ENALAPRIL [Concomitant]
  7. REMICADE [Suspect]
     Route: 042

REACTIONS (6)
  - DRUG INEFFECTIVE [None]
  - OESOPHAGEAL CANDIDIASIS [None]
  - PUSTULAR PSORIASIS [None]
  - HELICOBACTER INFECTION [None]
  - PSORIASIS [None]
  - DYSAESTHESIA [None]
